FAERS Safety Report 25726792 (Version 1)
Quarter: 2025Q3

REPORT INFORMATION
  Report Type: Spontaneous
  Country: US (occurrence: None)
  Receive Date: 20250825
  Receipt Date: 20250825
  Transmission Date: 20251020
  Serious: Yes (Death)
  Sender: FDA-CTU
  Company Number: None

PATIENT
  Sex: Male

DRUGS (1)
  1. AMIODARONE [Suspect]
     Active Substance: AMIODARONE

REACTIONS (5)
  - Wrong product administered [None]
  - Bradycardia [None]
  - Cardiac arrest [None]
  - Product dispensing error [None]
  - Contraindicated product administered [None]

NARRATIVE: CASE EVENT DATE: 20230808
